FAERS Safety Report 4462077-7 (Version None)
Quarter: 2004Q3

REPORT INFORMATION
  Report Type: 
  Country: None (occurrence: None)
  Receive Date: 20040924
  Receipt Date: 20040914
  Transmission Date: 20050211
  Serious: Yes (Hospitalization)
  Sender: FDA-Public Use
  Company Number: 200215

PATIENT
  Age: 48 Year
  Sex: Female

DRUGS (5)
  1. AVONEX [Suspect]
     Indication: MULTIPLE SCLEROSIS
     Dosage: 30 MCG QW IM
     Route: 030
     Dates: start: 20001001
  2. AVONEX [Suspect]
     Indication: MULTIPLE SCLEROSIS
     Dosage: 30 MCG QW IM
     Route: 030
  3. CYLERT [Concomitant]
  4. FOSAMAX [Concomitant]
  5. CALCIUM [Concomitant]

REACTIONS (8)
  - CALCULUS URETERIC [None]
  - CONTUSION [None]
  - FATIGUE [None]
  - FUNGAL INFECTION [None]
  - PYELONEPHRITIS [None]
  - SEPSIS [None]
  - URINARY TRACT INFECTION [None]
  - VEIN DISORDER [None]
